FAERS Safety Report 5512655-9 (Version None)
Quarter: 2007Q4

REPORT INFORMATION
  Report Type: 
  Country: None (occurrence: None)
  Receive Date: 20071112
  Receipt Date: 20071106
  Transmission Date: 20080405
  Serious: Yes (Death, Hospitalization, Other)
  Sender: FDA-Public Use
  Company Number: CO-BRACCO-BRO-012301

PATIENT
  Age: 34 Year
  Sex: Female

DRUGS (2)
  1. IOPAMIDOL [Suspect]
     Route: 037
     Dates: start: 20071023, end: 20071023
  2. IOPAMIDOL [Suspect]
     Indication: SPINAL MYELOGRAM
     Route: 037
     Dates: start: 20071023, end: 20071023

REACTIONS (3)
  - ASPIRATION BRONCHIAL [None]
  - CARDIO-RESPIRATORY ARREST [None]
  - TONIC CONVULSION [None]
